FAERS Safety Report 4487767-1 (Version None)
Quarter: 2004Q4

REPORT INFORMATION
  Report Type: 
  Country: None (occurrence: None)
  Receive Date: 20041027
  Receipt Date: 20041027
  Transmission Date: 20050328
  Serious: Yes (Hospitalization)
  Sender: FDA-Public Use
  Company Number: None

PATIENT
  Age: 79 Year
  Sex: Male

DRUGS (1)
  1. GATIFLOXACIN [Suspect]
     Indication: SINUSITIS
     Dosage: 400 MG PO QD
     Route: 048

REACTIONS (4)
  - BLOOD PRESSURE DECREASED [None]
  - FACE OEDEMA [None]
  - PRURITUS [None]
  - URTICARIA [None]
